FAERS Safety Report 22340435 (Version 1)
Quarter: 2023Q2

REPORT INFORMATION
  Report Type: Report from Study
  Country: US (occurrence: US)
  Receive Date: 20230518
  Receipt Date: 20230518
  Transmission Date: 20230721
  Serious: Yes (Other)
  Sender: FDA-Public Use
  Company Number: US-JAZZ PHARMACEUTICALS-2023-US-007110

PATIENT
  Sex: Male

DRUGS (2)
  1. XYREM [Suspect]
     Active Substance: SODIUM OXYBATE
     Indication: Hypersomnia
     Dosage: UNK
  2. MECLIZINE [Concomitant]
     Active Substance: MECLIZINE HYDROCHLORIDE
     Dosage: UNK
     Dates: start: 20230330

REACTIONS (9)
  - Retinal degeneration [Unknown]
  - Vitreous detachment [Unknown]
  - Peripheral venous disease [Unknown]
  - Obstructive sleep apnoea syndrome [Unknown]
  - Osteoporosis [Unknown]
  - Epiretinal membrane [Unknown]
  - Dyspepsia [Unknown]
  - Memory impairment [Unknown]
  - Off label use [Unknown]
